FAERS Safety Report 4482199-4 (Version None)
Quarter: 2004Q4

REPORT INFORMATION
  Report Type: 
  Country: None (occurrence: None)
  Receive Date: 20041020
  Receipt Date: 20041007
  Transmission Date: 20050328
  Serious: Yes (Life-Threatening, Hospitalization, Disabling, Other)
  Sender: FDA-Public Use
  Company Number: 2004076725

PATIENT
  Age: 82 Year
  Weight: 42 kg

DRUGS (7)
  1. ATORVASTATIN (ATORVASTATIN) [Suspect]
     Indication: ACUTE CORONARY SYNDROME
     Dosage: 80 MG (80 MG, 1 IN 1 D), ORAL
     Route: 048
     Dates: start: 20040806, end: 20040928
  2. ESCITALOPRAM (ESCITALOPRAM) [Concomitant]
  3. BISOPROLOL FUMARATE [Concomitant]
  4. CLOPIDOGREL (CLOPIDOGREL) [Concomitant]
  5. NICORANDIL (NICORANDIL) [Concomitant]
  6. OMEPRAZOLE [Concomitant]
  7. BURAM (AMILORIDE HYDROCHLORIDE, BUMETANIDE) [Concomitant]

REACTIONS (5)
  - ALANINE AMINOTRANSFERASE INCREASED [None]
  - BLOOD ALKALINE PHOSPHATASE INCREASED [None]
  - BLOOD BILIRUBIN INCREASED [None]
  - GAMMA-GLUTAMYLTRANSFERASE INCREASED [None]
  - RENAL FAILURE ACUTE [None]
